FAERS Safety Report 13536156 (Version 1)
Quarter: 2017Q2

REPORT INFORMATION
  Report Type: Spontaneous
  Country: US (occurrence: US)
  Receive Date: 20170511
  Receipt Date: 20170511
  Transmission Date: 20170830
  Serious: Yes (Disabling, Other)
  Sender: FDA-Public Use
  Company Number: None

PATIENT
  Age: 35 Year
  Sex: Female
  Weight: 50.85 kg

DRUGS (7)
  1. LEVOFLOXACIN 500MG [Suspect]
     Active Substance: LEVOFLOXACIN
     Indication: URINARY TRACT INFECTION
     Dosage: ?          QUANTITY:1 TABLET(S);?
     Route: 048
     Dates: start: 20170509, end: 20170509
  2. ANTIBIOTICS [Concomitant]
     Active Substance: UNSPECIFIED INGREDIENT
  3. VITAMIN C [Concomitant]
     Active Substance: ASCORBIC ACID
  4. VITAMIN D [Concomitant]
     Active Substance: CHOLECALCIFEROL
  5. ALOE VERA GEL [Concomitant]
     Active Substance: ALOE VERA LEAF
  6. MESALAMINE ENEMA [Concomitant]
  7. VITAMIN B COMPLEX [Concomitant]
     Active Substance: CYANOCOBALAMIN\DEXPANTHENOL\NIACINAMIDE\PYRIDOXINE HYDROCHLORIDE\RIBOFLAVIN 5^-PHOSPHATE SODIUM\THIAMINE HYDROCHLORIDE\VITAMIN B COMPLEX

REACTIONS (28)
  - Dizziness [None]
  - Throat irritation [None]
  - Malaise [None]
  - Tendon discomfort [None]
  - Sensory disturbance [None]
  - Abdominal pain [None]
  - Disturbance in attention [None]
  - Asthenia [None]
  - Tinnitus [None]
  - Paraesthesia [None]
  - Headache [None]
  - Head discomfort [None]
  - Influenza like illness [None]
  - Myalgia [None]
  - Joint crepitation [None]
  - Visual impairment [None]
  - Movement disorder [None]
  - Rhinorrhoea [None]
  - Oral discomfort [None]
  - Muscular weakness [None]
  - Ear discomfort [None]
  - Abdominal discomfort [None]
  - Feeling abnormal [None]
  - Nausea [None]
  - Fatigue [None]
  - Musculoskeletal discomfort [None]
  - Chest pain [None]
  - Pharyngeal oedema [None]

NARRATIVE: CASE EVENT DATE: 20170509
